FAERS Safety Report 8717908 (Version 2)
Quarter: 2012Q4

REPORT INFORMATION
  Report Type: 
  Country: IT (occurrence: IT)
  Receive Date: 20120810
  Receipt Date: 20120910
  Transmission Date: 20130627
  Serious: Yes (Congenital Anomaly, Other)
  Sender: FDA-Public Use
  Company Number: IT-ABBOTT-12P-083-0943866-00

PATIENT
  Sex: Male

DRUGS (2)
  1. DEPAKINE TABLETS [Suspect]
     Indication: MATERNAL EXPOSURE TIMING UNSPECIFIED
     Route: 064
  2. DEPAKINE TABLETS [Suspect]
     Indication: BIPOLAR DISORDER

REACTIONS (4)
  - Spina bifida [Recovered/Resolved with Sequelae]
  - Meningomyelocele [Unknown]
  - Premature baby [Unknown]
  - Foetal exposure during pregnancy [Unknown]
